FAERS Safety Report 9620982 (Version 1)
Quarter: 2013Q4

REPORT INFORMATION
  Report Type: Spontaneous
  Country: KR (occurrence: KR)
  Receive Date: 20131015
  Receipt Date: 20131015
  Transmission Date: 20140711
  Serious: Yes (Death, Other)
  Sender: FDA-Public Use
  Company Number: PHHY2013KR115023

PATIENT
  Age: 24 Year
  Sex: Female

DRUGS (3)
  1. IMATINIB [Suspect]
     Indication: GASTROINTESTINAL STROMAL TUMOUR
  2. NILOTINIB [Suspect]
     Indication: GASTROINTESTINAL STROMAL TUMOUR
     Dosage: UNK UKN, UNK
  3. SUNITINIB [Suspect]
     Indication: GASTROINTESTINAL STROMAL TUMOUR
     Dosage: UNK UKN, UNK

REACTIONS (5)
  - Gastrointestinal stromal tumour [Fatal]
  - Metastases to liver [Unknown]
  - Metastases to lung [Unknown]
  - Metastases to peritoneum [Unknown]
  - No therapeutic response [Unknown]
